FAERS Safety Report 8711170 (Version 4)
Quarter: 2012Q4

REPORT INFORMATION
  Report Type: Spontaneous
  Country: None (occurrence: None)
  Receive Date: 20120720
  Receipt Date: 20120829
  Transmission Date: 20130627
  Serious: Yes (Death, Other)
  Sender: FDA-Public Use
  Company Number: AUR-APL-2012-03007

PATIENT
  Age: 79 Year
  Sex: Female
  Weight: 55.45 kg

DRUGS (27)
  1. CLARITHROMYCIN [Suspect]
     Indication: COMMUNITY ACQUIRED PNEUMONIA
     Dosage: 1000 MG (500 MG, 2 IN 1 D), ORAL
     Route: 048
     Dates: start: 20120512, end: 20120521
  2. ZOCOR [Suspect]
     Indication: DRUG USE FOR UNKNOWN INDICATION
  3. BUMETANIDE [Suspect]
     Indication: DRUG USE FOR UNKNOWN INDICATION
  4. SPIRONOLACTONE [Suspect]
     Indication: PRODUCT USED FOR UNKNOWN INDICATION
  5. ADCAL-D3 [Concomitant]
  6. ADENOSINE [Concomitant]
  7. AMIODARONE HYDROCHLORIDE [Concomitant]
  8. BISOPROLOL FUMARATE [Concomitant]
  9. CANDESARTAN CILEXETIL [Concomitant]
  10. CLOTRIMAZOLE [Concomitant]
  11. AMOXICILLIN\CLAVULANATE POTASSIUM [Concomitant]
  12. ACETAMINOPHEN AND CODEINE [Concomitant]
  13. DALTEPARIN SODIUM [Concomitant]
  14. DICLOFENAC DIETHYLAMMONIUM SALT (DICLOFENAC DIETHYLAMINE) [Concomitant]
  15. DIORALYTE (DIORALYTE) [Concomitant]
  16. FOLIC ACID [Concomitant]
  17. FORTISIP (FORTISIP) [Concomitant]
  18. FUROSEMIDE [Concomitant]
  19. GENTAMICIN SULFATE [Concomitant]
  20. HEPARIN [Concomitant]
  21. METHOTREXATE SODIUM [Concomitant]
  22. METOCLOPRAMIDE [Concomitant]
  23. OMEPRAZOLE [Concomitant]
  24. ACETAMINOPHEN [Concomitant]
  25. TEICOPLANIN (TEICOPLANIN) [Concomitant]
  26. TRAMADOL HYDROCHLORIDE [Concomitant]
  27. WARFARIN SODIUM [Concomitant]

REACTIONS (12)
  - Oedema peripheral [None]
  - Rash maculo-papular [None]
  - Monoplegia [None]
  - Drug hypersensitivity [None]
  - Atrial fibrillation [None]
  - Pulmonary embolism [None]
  - Pulmonary fibrosis [None]
  - Fluid overload [None]
  - Toxic epidermal necrolysis [None]
  - Renal failure acute [None]
  - Haemoglobin decreased [None]
  - Stevens-Johnson syndrome [None]
